FAERS Safety Report 5512890-X (Version None)
Quarter: 2007Q4

REPORT INFORMATION
  Report Type: 
  Country: None (occurrence: None)
  Receive Date: 20071112
  Receipt Date: 20071106
  Transmission Date: 20080405
  Serious: Yes (Hospitalization)
  Sender: FDA-Public Use
  Company Number: A0691705A

PATIENT
  Sex: Female

DRUGS (5)
  1. ADVAIR DISKUS 100/50 [Suspect]
     Indication: CHRONIC OBSTRUCTIVE PULMONARY DISEASE
     Dosage: 1PUFF TWICE PER DAY
     Route: 055
     Dates: start: 20030101
  2. NEXIUM [Concomitant]
  3. FLONASE [Concomitant]
  4. ZYRTEC [Concomitant]
  5. ALBUTEROL [Concomitant]

REACTIONS (5)
  - CATARACT [None]
  - DYSPNOEA [None]
  - LYMPHADENOPATHY [None]
  - PNEUMONIA [None]
  - TREMOR [None]
